FAERS Safety Report 8538124-X (Version None)
Quarter: 2012Q3

REPORT INFORMATION
  Report Type: 
  Country: None (occurrence: None)
  Receive Date: 20120725
  Receipt Date: 20120404
  Transmission Date: 20120928
  Serious: Yes (Hospitalization)
  Sender: FDA-Public Use
  Company Number: PHHO2011TH01357

PATIENT
  Sex: Male
  Weight: 44 kg

DRUGS (7)
  1. EVEROLIMUS [Suspect]
     Dosage: 5 MG, QD
     Route: 048
     Dates: start: 20110222
  2. EVEROLIMUS [Suspect]
     Dosage: 10 MG, QD
     Route: 048
     Dates: end: 20110511
  3. MEGESTROL ACETATE [Concomitant]
  4. ALLOPURINOL [Concomitant]
     Indication: HYPERURICAEMIA
     Dosage: UNK
  5. COLCHICINE [Concomitant]
     Indication: GOUTY ARTHRITIS
     Dosage: UNK
  6. GEMFIBROZIL [Concomitant]
     Indication: DYSLIPIDAEMIA
     Dosage: UNK
  7. EVEROLIMUS [Suspect]
     Indication: METASTATIC RENAL CELL CARCINOMA
     Dosage: 10 MG, QD
     Route: 048
     Dates: start: 20101123, end: 20110201

REACTIONS (7)
  - RENAL FAILURE [None]
  - SEPSIS [None]
  - BLOOD CREATININE INCREASED [None]
  - INFECTION [None]
  - DEHYDRATION [None]
  - FEBRILE NEUTROPENIA [None]
  - DIARRHOEA [None]
